FAERS Safety Report 24616475 (Version 1)
Quarter: 2024Q4

REPORT INFORMATION
  Report Type: Spontaneous
  Country: BR (occurrence: BR)
  Receive Date: 20241114
  Receipt Date: 20241114
  Transmission Date: 20250114
  Serious: Yes (Other)
  Sender: NOVO NORDISK
  Company Number: BR-NOVOPROD-1313660

PATIENT
  Age: 83 Year
  Sex: Male

DRUGS (1)
  1. NOVORAPID [Suspect]
     Active Substance: INSULIN ASPART
     Indication: Type 2 diabetes mellitus
     Dosage: USUALLY TAKES 12 UNITS,MORNING ON AN EMPTY STOMACH, BEFORE LUNCH, BEFORE DINNER, AND AT NIGHT.

REACTIONS (2)
  - Cerebrovascular accident [Recovered/Resolved]
  - Coronary artery bypass [Recovered/Resolved]

NARRATIVE: CASE EVENT DATE: 20190101
